FAERS Safety Report 15099731 (Version 1)
Quarter: 2018Q3

REPORT INFORMATION
  Report Type: Spontaneous
  Country: GB (occurrence: GB)
  Receive Date: 20180702
  Receipt Date: 20180702
  Transmission Date: 20181010
  Serious: Yes (Death)
  Sender: FDA-Public Use
  Company Number: GB-ASTRAZENECA-2018SE82657

PATIENT
  Sex: Female

DRUGS (1)
  1. LYNPARZA [Suspect]
     Active Substance: OLAPARIB
     Dosage: 20?JAN?2018, 16?FEB?2018 AND 20?MAR?2018.
     Route: 048

REACTIONS (1)
  - Death [Fatal]
